FAERS Safety Report 8174295-5 (Version None)
Quarter: 2012Q1

REPORT INFORMATION
  Report Type: 
  Country: None (occurrence: None)
  Receive Date: 20120229
  Receipt Date: 20120218
  Transmission Date: 20120608
  Serious: Yes (Other)
  Sender: FDA-Public Use
  Company Number: US-BRISTOL-MYERS SQUIBB COMPANY-16413106

PATIENT
  Age: 52 Year
  Sex: Female
  Weight: 54 kg

DRUGS (3)
  1. PACLITAXEL [Suspect]
     Indication: NON-SMALL CELL LUNG CANCER
     Dosage: LAST ADMINSTERED:07JUL10
     Route: 042
     Dates: start: 20100506
  2. CETUXIMAB [Suspect]
     Indication: NON-SMALL CELL LUNG CANCER
     Dosage: LOADING DOSE:400MG/M2 MAINTAINANCE DOSE:250MG/M2 LAST ADMINSTERED:21JUL10
     Route: 042
     Dates: start: 20100506, end: 20100721
  3. CARBOPLATIN [Suspect]
     Indication: NON-SMALL CELL LUNG CANCER
     Dosage: TOTAL DOSE: 990MG + 742MG
     Route: 042
     Dates: start: 20100506, end: 20100707

REACTIONS (6)
  - MYALGIA [None]
  - ALOPECIA [None]
  - ARTHRALGIA [None]
  - NAIL INFECTION [None]
  - PERIPHERAL SENSORY NEUROPATHY [None]
  - ANXIETY [None]
